FAERS Safety Report 5350940-4 (Version None)
Quarter: 2007Q2

REPORT INFORMATION
  Report Type: 
  Country: None (occurrence: None)
  Receive Date: 20070608
  Receipt Date: 20070604
  Transmission Date: 20071010
  Serious: Yes (Life-Threatening)
  Sender: FDA-Public Use
  Company Number: DE-MERCK-0705DEU00116

PATIENT
  Age: 79 Year
  Sex: Female
  Weight: 65 kg

DRUGS (4)
  1. HYZAAR [Suspect]
     Indication: HYPERTENSION
     Route: 048
     Dates: start: 20060101, end: 20070514
  2. ANTIMICROBIAL (UNSPECIFIED) [Concomitant]
     Indication: UPPER RESPIRATORY TRACT INFECTION
     Route: 065
  3. ZOLPIDEM TARTRATE [Concomitant]
     Indication: SLEEP DISORDER
     Route: 065
     Dates: start: 20030101
  4. LEVOTHYROXINE SODIUM [Concomitant]
     Indication: THYROID OPERATION
     Route: 065

REACTIONS (2)
  - OEDEMA MOUTH [None]
  - PHARYNGEAL OEDEMA [None]
